FAERS Safety Report 5464295-8 (Version None)
Quarter: 2007Q3

REPORT INFORMATION
  Report Type: 
  Country: None (occurrence: None)
  Receive Date: 20070921
  Receipt Date: 20070914
  Transmission Date: 20080115
  Serious: Yes (Other)
  Sender: FDA-Public Use
  Company Number: B0487262A

PATIENT
  Age: 13 Year
  Sex: Female

DRUGS (1)
  1. FLIXONASE [Suspect]
     Indication: DRUG USE FOR UNKNOWN INDICATION
     Route: 045

REACTIONS (4)
  - ACCIDENTAL EXPOSURE [None]
  - CRYING [None]
  - DRUG ADMINISTRATION ERROR [None]
  - TRAUMATIC SHOCK [None]
